FAERS Safety Report 26157246 (Version 2)
Quarter: 2025Q4

REPORT INFORMATION
  Report Type: Report from Study
  Country: US (occurrence: None)
  Receive Date: 20251215
  Receipt Date: 20251218
  Transmission Date: 20260119
  Serious: No
  Sender: UCB
  Company Number: US-UCBSA-2025079011

PATIENT
  Age: 12 Year
  Weight: 20.5 kg

DRUGS (2)
  1. FENFLURAMINE HYDROCHLORIDE [Suspect]
     Active Substance: FENFLURAMINE HYDROCHLORIDE
     Indication: Product used for unknown indication
     Dosage: UNK
  2. FENFLURAMINE HYDROCHLORIDE [Suspect]
     Active Substance: FENFLURAMINE HYDROCHLORIDE
     Dosage: 13.2 MG/DAY

REACTIONS (1)
  - Aortic valve thickening [Not Recovered/Not Resolved]
